FAERS Safety Report 6159039-0 (Version None)
Quarter: 2009Q2

REPORT INFORMATION
  Report Type: 
  Country: None (occurrence: None)
  Receive Date: 20090417
  Receipt Date: 20090409
  Transmission Date: 20091009
  Serious: Yes (Other)
  Sender: FDA-Public Use
  Company Number: CA-PFIZER INC-2009197926

PATIENT

DRUGS (1)
  1. LIPITOR [Suspect]
     Indication: BLOOD CHOLESTEROL INCREASED

REACTIONS (9)
  - AMNESIA [None]
  - ANXIETY [None]
  - DEPRESSION [None]
  - FEELINGS OF WORTHLESSNESS [None]
  - MUSCULAR WEAKNESS [None]
  - PAIN [None]
  - SOCIAL PROBLEM [None]
  - SUICIDAL IDEATION [None]
  - WEIGHT DECREASED [None]
